FAERS Safety Report 5259023-5 (Version None)
Quarter: 2007Q1

REPORT INFORMATION
  Report Type: 
  Country: None (occurrence: None)
  Receive Date: 20070308
  Receipt Date: 20070226
  Transmission Date: 20070707
  Serious: Yes (Hospitalization)
  Sender: FDA-Public Use
  Company Number: US-AMGEN-US208564

PATIENT
  Sex: Female
  Weight: 72 kg

DRUGS (10)
  1. PROCRIT [Suspect]
     Indication: RENAL FAILURE CHRONIC
     Dates: start: 20061220
  2. PRILOSEC [Concomitant]
  3. VITAMIN B-12 [Concomitant]
  4. DARVON [Concomitant]
  5. ACTONEL [Concomitant]
  6. FOLIC ACID [Concomitant]
  7. SYNTHROID [Concomitant]
  8. IRON [Concomitant]
  9. LASIX [Concomitant]
  10. RISPERDAL [Concomitant]

REACTIONS (3)
  - CATATONIA [None]
  - DEMENTIA [None]
  - HYPOTHERMIA [None]
